FAERS Safety Report 6706955-4 (Version None)
Quarter: 2010Q2

REPORT INFORMATION
  Report Type: 
  Country: None (occurrence: None)
  Receive Date: 20100430
  Receipt Date: 20100430
  Transmission Date: 20101027
  Serious: Yes (Other)
  Sender: FDA-Public Use
  Company Number: None

PATIENT
  Age: 35 Year
  Sex: Female
  Weight: 98.8842 kg

DRUGS (2)
  1. INVEGA SUSTENNA [Suspect]
     Indication: SCHIZOPHRENIA, PARANOID TYPE
     Dosage: 234 MG X1 DOSE IM
     Route: 030
     Dates: start: 20100412, end: 20100412
  2. INVEGA SUSTENNA [Suspect]
     Indication: SCHIZOPHRENIA, PARANOID TYPE
     Dosage: 156 MG X1 DOSE IM
     Route: 030
     Dates: start: 20100419, end: 20100419

REACTIONS (2)
  - ABSCESS [None]
  - INJECTION SITE CELLULITIS [None]
